FAERS Safety Report 5601781-1 (Version None)
Quarter: 2008Q1

REPORT INFORMATION
  Report Type: 
  Country: None (occurrence: None)
  Receive Date: 20080124
  Receipt Date: 20080114
  Transmission Date: 20080703
  Serious: Yes (Hospitalization, Disabling, Other)
  Sender: FDA-Public Use
  Company Number: US-MERCK-0704USA05892

PATIENT
  Age: 60 Year
  Sex: Female

DRUGS (43)
  1. FOSAMAX [Suspect]
     Indication: OSTEOPOROSIS
     Route: 048
     Dates: start: 19980101, end: 20010101
  2. FOSAMAX [Suspect]
     Route: 048
     Dates: start: 20010101, end: 20050601
  3. ACCUPRIL [Concomitant]
     Route: 065
     Dates: start: 19980501, end: 20020501
  4. ALLOPURINOL [Concomitant]
     Route: 065
     Dates: start: 19991001, end: 20020201
  5. AZATHIOPRINE [Concomitant]
     Route: 065
     Dates: start: 19971101, end: 20031001
  6. CELLCEPT [Concomitant]
     Route: 065
     Dates: start: 20021001
  7. CHOLESTYRAMINE RESIN [Concomitant]
     Route: 065
     Dates: start: 19990101, end: 19990401
  8. CIMETIDINE [Concomitant]
     Route: 065
     Dates: start: 20010401, end: 20011101
  9. CLONIDINE [Concomitant]
     Route: 065
     Dates: start: 19991101, end: 20000201
  10. CYTOXAN [Concomitant]
     Route: 065
     Dates: start: 19991201, end: 20000301
  11. DIBENZYLINE CAPSULES [Concomitant]
     Route: 065
     Dates: start: 19990601, end: 19991101
  12. DIPROLENE [Concomitant]
     Route: 061
     Dates: start: 20030501
  13. ENBREL [Concomitant]
     Route: 065
     Dates: start: 20011201, end: 20020401
  14. ESTRADIOL [Concomitant]
     Route: 065
     Dates: start: 20020301, end: 20020901
  15. FUROSEMIDE [Concomitant]
     Route: 065
     Dates: start: 19990801
  16. HYDROCODONE BITARTRATE [Concomitant]
     Route: 065
     Dates: start: 20030101
  17. K-DUR 10 [Concomitant]
     Route: 065
     Dates: start: 20010401, end: 20010901
  18. KLOR-CON [Concomitant]
     Route: 065
     Dates: start: 20011001, end: 20011201
  19. LEVOTHYROXINE SODIUM [Concomitant]
     Route: 065
     Dates: start: 20050101
  20. LIDOCAINE [Concomitant]
     Route: 065
     Dates: start: 20020101
  21. LIPITOR [Concomitant]
     Route: 065
     Dates: start: 19991001
  22. METHOTREXATE [Concomitant]
     Route: 051
     Dates: start: 19970801, end: 19991101
  23. METHOTREXATE [Concomitant]
     Route: 048
     Dates: start: 20010301, end: 20011101
  24. METOPROLOL [Concomitant]
     Route: 065
     Dates: start: 19980301, end: 20020301
  25. NEORAL [Concomitant]
     Route: 065
     Dates: start: 19980101, end: 19990101
  26. ACETAMINOPHEN AND PROPOXYPHENE NAPSYLATE [Concomitant]
     Route: 065
     Dates: start: 20000201, end: 20000401
  27. [THERAPY UNSPECIFIED] [Concomitant]
     Route: 065
     Dates: start: 20011001
  28. WARFARIN [Concomitant]
     Route: 065
     Dates: start: 20021001, end: 20030301
  29. ZOCOR [Concomitant]
     Route: 065
     Dates: start: 19990501, end: 19990601
  30. ACETAMINOPHEN [Concomitant]
     Route: 065
     Dates: start: 20030301
  31. ACYCLOVIR [Concomitant]
     Route: 065
     Dates: start: 20010801
  32. DIFLORASONE DIACETATE [Concomitant]
     Route: 065
     Dates: start: 19990401
  33. FAMVIR [Concomitant]
     Route: 065
     Dates: start: 20000201
  34. FLUCLORONIDE [Concomitant]
     Route: 065
     Dates: start: 20031201
  35. FLUZONE (INFLUENZA VIRUS SPLIT VIRION 3V VACCINE INACTIVATED) [Concomitant]
     Route: 065
     Dates: start: 20021201
  36. GUAIFED [Concomitant]
     Route: 065
     Dates: start: 19981101
  37. LIDEX [Concomitant]
     Route: 065
     Dates: start: 19980101
  38. LUXIQ [Concomitant]
     Route: 065
     Dates: start: 19990701
  39. MYCELEX [Concomitant]
     Route: 065
     Dates: start: 20001001
  40. METHOCARBAMOL [Concomitant]
     Route: 065
     Dates: start: 20031101
  41. NEXIUM [Concomitant]
     Route: 065
     Dates: start: 19990601
  42. OCUFLOX [Concomitant]
     Route: 065
     Dates: start: 19990601
  43. TRIAMTERENE [Concomitant]
     Route: 065
     Dates: start: 19980401

REACTIONS (28)
  - ADVERSE DRUG REACTION [None]
  - ALOPECIA [None]
  - BACTERIAL INFECTION [None]
  - BLOOD CHOLESTEROL [None]
  - BRONCHITIS [None]
  - CANDIDIASIS [None]
  - CARDIAC FAILURE CONGESTIVE [None]
  - DEEP VEIN THROMBOSIS [None]
  - DIABETES MELLITUS [None]
  - DUODENAL ULCER [None]
  - EYE INFECTION [None]
  - FRACTURE [None]
  - FUNGAL INFECTION [None]
  - GASTROENTERITIS VIRAL [None]
  - GASTROOESOPHAGEAL REFLUX DISEASE [None]
  - GOUT [None]
  - HYPERTENSION [None]
  - INFLUENZA [None]
  - JAW FRACTURE [None]
  - LEUKOPENIA [None]
  - LUNG NEOPLASM [None]
  - ORAL HERPES [None]
  - OSTEOMYELITIS [None]
  - OSTEONECROSIS [None]
  - PARESIS CRANIAL NERVE [None]
  - SINUSITIS [None]
  - SPINAL COMPRESSION FRACTURE [None]
  - WEIGHT DECREASED [None]
